FAERS Safety Report 9326764 (Version 2)
Quarter: 2013Q3

REPORT INFORMATION
  Report Type: Spontaneous
  Country: US (occurrence: US)
  Receive Date: 20130604
  Receipt Date: 20130807
  Transmission Date: 20140515
  Serious: Yes (Hospitalization)
  Sender: FDA-Public Use
  Company Number: US-AMGEN-USASP2013033431

PATIENT
  Age: 65 Year
  Sex: Male

DRUGS (5)
  1. ENBREL [Suspect]
     Indication: ANKYLOSING SPONDYLITIS
     Dosage: 50 MG, QWK
     Route: 058
     Dates: start: 20050130
  2. METOPROLOL [Concomitant]
     Dosage: 100 UNK, UNK
  3. FINASTERIDE [Concomitant]
     Dosage: 5 G, UNK
  4. DOXAZOSIN [Concomitant]
     Dosage: 1 G, UNK
  5. ASA [Concomitant]
     Dosage: 375 UNK, UNK

REACTIONS (7)
  - Pneumonia [Recovered/Resolved]
  - Joint swelling [Recovered/Resolved]
  - Arthralgia [Not Recovered/Not Resolved]
  - Neck pain [Unknown]
  - Musculoskeletal pain [Unknown]
  - Joint effusion [Unknown]
  - Upper respiratory tract infection [Unknown]
